FAERS Safety Report 8849530 (Version 1)
Quarter: 2012Q4

REPORT INFORMATION
  Report Type: Report from Study
  Country: CA (occurrence: CA)
  Receive Date: 20121019
  Receipt Date: 20121019
  Transmission Date: 20130627
  Serious: Yes (Other)
  Sender: FDA-Public Use
  Company Number: CA-JNJFOC-20121005228

PATIENT
  Sex: Female
  Weight: 88 kg

DRUGS (4)
  1. REMICADE [Suspect]
     Indication: CROHN^S DISEASE
     Route: 042
     Dates: start: 20081108
  2. METHOTREXATE [Concomitant]
     Route: 065
  3. SEPTRA [Concomitant]
     Route: 065
  4. ASA [Concomitant]
     Route: 065

REACTIONS (2)
  - Breast cancer [Unknown]
  - Influenza like illness [Recovering/Resolving]
